FAERS Safety Report 4776358-0 (Version None)
Quarter: 2005Q3

REPORT INFORMATION
  Report Type: 
  Country: None (occurrence: None)
  Receive Date: 20050921
  Receipt Date: 20050908
  Transmission Date: 20060218
  Serious: Yes (Hospitalization, Disabling)
  Sender: FDA-Public Use
  Company Number: 2005120373

PATIENT
  Age: 25 Year
  Sex: Female

DRUGS (5)
  1. ZITHROMAX [Suspect]
     Indication: TONSILLITIS
     Dosage: 500 MG (500 MG), ORAL
     Route: 048
     Dates: start: 20050819, end: 20050824
  2. NIMESULIDE (NIMESULIDE) [Suspect]
     Indication: ILL-DEFINED DISORDER
     Dosage: 200 MG (100 MG, DAILY), ORAL
     Route: 048
     Dates: start: 20050819, end: 20050820
  3. ACETAMINOPHEN [Concomitant]
  4. PARACETAMOL WITH CODEINE (CODEINE PHOSPHATE,  PARACETAMOL) [Concomitant]
  5. NIMESULIDE (NIMESULIDE) [Concomitant]

REACTIONS (8)
  - ABDOMINAL PAIN UPPER [None]
  - ACTIVITIES OF DAILY LIVING IMPAIRED [None]
  - ANOREXIA [None]
  - DIARRHOEA [None]
  - IMMUNOSUPPRESSION [None]
  - NAUSEA [None]
  - URINARY TRACT INFECTION [None]
  - VOMITING [None]
